FAERS Safety Report 7737281-2 (Version None)
Quarter: 2011Q3

REPORT INFORMATION
  Report Type: 
  Country: None (occurrence: None)
  Receive Date: 20110908
  Receipt Date: 20110830
  Transmission Date: 20111222
  Serious: Yes (Other)
  Sender: FDA-Public Use
  Company Number: HR-MPIJNJ-2011-02939

PATIENT

DRUGS (2)
  1. VELCADE [Suspect]
     Indication: MULTIPLE MYELOMA
     Dosage: 1.3 MG/M2, UNK
     Route: 042
     Dates: start: 20110620
  2. VELCADE [Suspect]
     Dosage: 1 MG/M2, 1/WEEK
     Route: 042

REACTIONS (2)
  - NEUTROPENIA [None]
  - NEUTROPENIC COLITIS [None]
